FAERS Safety Report 8216875-4 (Version None)
Quarter: 2012Q1

REPORT INFORMATION
  Report Type: 
  Country: None (occurrence: None)
  Receive Date: 20120316
  Receipt Date: 20120313
  Transmission Date: 20120608
  Serious: Yes (Other)
  Sender: FDA-Public Use
  Company Number: US-AMGEN-USASP2011059174

PATIENT
  Age: 71 Year
  Sex: Female

DRUGS (15)
  1. TYLENOL [Concomitant]
     Dosage: UNK
  2. OMEPRAZOLE [Concomitant]
     Dosage: UNK
  3. PROLIA [Suspect]
     Indication: OSTEOPOROSIS
     Dosage: 60 MG, UNK
     Route: 058
     Dates: start: 20110727
  4. ASPIRIN [Concomitant]
     Dosage: UNK
  5. LEVOXYL [Concomitant]
     Dosage: UNK UNK, QD
     Route: 048
  6. WELLBUTRIN [Concomitant]
     Dosage: 100 MG, QD
     Route: 048
  7. MULTI-VITAMINS [Concomitant]
     Dosage: UNK
  8. CALCIUM WITH VITAMIN D [Concomitant]
     Dosage: UNK
  9. FISH OIL [Concomitant]
     Dosage: UNK
  10. PROLIA [Suspect]
     Dosage: 60 MG, UNK
     Route: 058
     Dates: start: 20110727
  11. LOSARTAN POTASSIUM [Concomitant]
     Dosage: 50 MG, QD
     Route: 048
  12. HIDROCLOROTIAZIDA [Concomitant]
     Dosage: UNK UNK, QD
     Route: 048
  13. PRAVASTATIN [Concomitant]
     Dosage: UNK
  14. CITALOPRAM HYDROBROMIDE [Concomitant]
     Dosage: 40 MG, QD
     Route: 048
  15. ANTIHYPERTENSIVES [Concomitant]
     Indication: HYPERTENSION
     Dosage: UNK

REACTIONS (4)
  - CHRONIC MYELOID LEUKAEMIA [None]
  - CHEST PAIN [None]
  - DYSPNOEA [None]
  - FATIGUE [None]
